FAERS Safety Report 20740688 (Version 1)
Quarter: 2022Q2

REPORT INFORMATION
  Report Type: Spontaneous
  Country: US (occurrence: US)
  Receive Date: 20220422
  Receipt Date: 20220422
  Transmission Date: 20220720
  Serious: No
  Sender: FDA-Public Use
  Company Number: US-PFIZER INC-202101259819

PATIENT
  Age: 41 Year
  Sex: Female

DRUGS (3)
  1. INLYTA [Suspect]
     Active Substance: AXITINIB
     Indication: Renal cancer
     Dosage: 1 MG (TAKE 4 TABLET(S) EVERY 12 HOURS BY ORAL ROUTE FOR 30 DAYS)
     Route: 048
  2. INLYTA [Suspect]
     Active Substance: AXITINIB
     Dosage: 16 MG, 2X/DAY(4 TABLETS EVERY 12 HOURS BY ORAL ROUTE DAILY)
     Route: 048
  3. INLYTA [Suspect]
     Active Substance: AXITINIB
     Dosage: 4 MG, 2X/DAY (4 MG BID)

REACTIONS (1)
  - Weight decreased [Unknown]
